FAERS Safety Report 24900023 (Version 2)
Quarter: 2025Q1

REPORT INFORMATION
  Report Type: Spontaneous
  Country: IN (occurrence: IN)
  Receive Date: 20250129
  Receipt Date: 20250131
  Transmission Date: 20250409
  Serious: Yes (Other)
  Sender: CHATTEM
  Company Number: IN-MLMSERVICE-20250113-PI345862-00323-2

PATIENT
  Age: 60 Year
  Sex: Male

DRUGS (4)
  1. TRIAMCINOLONE ACETONIDE [Suspect]
     Active Substance: TRIAMCINOLONE ACETONIDE
     Indication: Retinal detachment
     Route: 031
  2. TRIAMCINOLONE ACETONIDE [Suspect]
     Active Substance: TRIAMCINOLONE ACETONIDE
     Indication: Cystoid macular oedema
  3. DEXAMETHASONE [Suspect]
     Active Substance: DEXAMETHASONE
     Indication: Retinal vein occlusion
     Route: 031
  4. DEXAMETHASONE [Suspect]
     Active Substance: DEXAMETHASONE
     Indication: Macular oedema

REACTIONS (6)
  - Central serous chorioretinopathy [Recovered/Resolved]
  - Retinoschisis [Recovered/Resolved]
  - Detachment of retinal pigment epithelium [Recovered/Resolved]
  - Retinal detachment [Recovered/Resolved]
  - Visual impairment [Recovered/Resolved]
  - Cyst [Recovered/Resolved]
